FAERS Safety Report 17613224 (Version 1)
Quarter: 2020Q2

REPORT INFORMATION
  Report Type: Report from Study
  Country: US (occurrence: US)
  Receive Date: 20200402
  Receipt Date: 20200402
  Transmission Date: 20200713
  Serious: No
  Sender: FDA-Public Use
  Company Number: NVSC2020US085645

PATIENT
  Sex: Female

DRUGS (2)
  1. COSENTYX [Suspect]
     Active Substance: SECUKINUMAB
     Dosage: 1 DF
     Route: 065
     Dates: start: 20200326
  2. COSENTYX [Suspect]
     Active Substance: SECUKINUMAB
     Indication: PRODUCT USED FOR UNKNOWN INDICATION
     Dosage: UNK
     Route: 065

REACTIONS (7)
  - Pruritus [Unknown]
  - Oral herpes [Unknown]
  - Asthenia [Unknown]
  - Feeling abnormal [Unknown]
  - Malaise [Unknown]
  - Vitamin D decreased [Unknown]
  - Fatigue [Unknown]
